FAERS Safety Report 10437857 (Version 1)
Quarter: 2014Q3

REPORT INFORMATION
  Report Type: Spontaneous
  Country: FR (occurrence: None)
  Receive Date: 20140904
  Receipt Date: 20140904
  Transmission Date: 20150326
  Serious: Yes (Other)
  Sender: FDA-Public Use
  Company Number: FR-ZYDUS-004427

PATIENT
  Age: 26 Year
  Sex: Female

DRUGS (1)
  1. BROMOCRIPTINE [Suspect]
     Active Substance: BROMOCRIPTINE
     Route: 048

REACTIONS (6)
  - Quadriplegia [None]
  - Central nervous system lesion [None]
  - Pericardial effusion [None]
  - Myocardial infarction [None]
  - Arteriospasm coronary [None]
  - Blindness [None]
